FAERS Safety Report 18038076 (Version 1)
Quarter: 2020Q3

REPORT INFORMATION
  Report Type: Spontaneous
  Country: FR (occurrence: FR)
  Receive Date: 20200717
  Receipt Date: 20200717
  Transmission Date: 20201103
  Serious: Yes (Other)
  Sender: FDA-Public Use
  Company Number: FR-MYLANLABS-2020M1063716

PATIENT
  Age: 36 Year
  Sex: Female

DRUGS (1)
  1. FORMOTEROL MYLAN 12 MICROGRAMMES, POUDRE POUR INHALATIONENG?LULE [Suspect]
     Active Substance: FORMOTEROL
     Indication: COUGH
     Dosage: 12 MICROGRAM, BID MORNING AND EVENING

REACTIONS (8)
  - Presyncope [Recovering/Resolving]
  - Formication [Recovering/Resolving]
  - Oral discomfort [Recovering/Resolving]
  - Palpitations [Recovering/Resolving]
  - Fatigue [Recovering/Resolving]
  - Diarrhoea [Recovering/Resolving]
  - Sensory loss [Recovering/Resolving]
  - Anosmia [Recovering/Resolving]
